FAERS Safety Report 7726753-2 (Version None)
Quarter: 2011Q3

REPORT INFORMATION
  Report Type: 
  Country: None (occurrence: None)
  Receive Date: 20110902
  Receipt Date: 20110824
  Transmission Date: 20111222
  Serious: Yes (Hospitalization)
  Sender: FDA-Public Use
  Company Number: US-GLAXOSMITHKLINE-A0755097A

PATIENT
  Age: 59 Year
  Sex: Male
  Weight: 56.4 kg

DRUGS (7)
  1. CYMBALTA [Concomitant]
  2. AVAPRO [Concomitant]
  3. METFORMIN HCL [Concomitant]
  4. AVANDIA [Suspect]
     Indication: TYPE 2 DIABETES MELLITUS
     Dosage: 8MG PER DAY
     Route: 048
     Dates: start: 20060101, end: 20070101
  5. AVANDARYL [Suspect]
     Indication: TYPE 2 DIABETES MELLITUS
     Dosage: 8MG TWICE PER DAY
     Route: 048
     Dates: start: 20060101, end: 20070101
  6. AMARYL [Concomitant]
  7. VIAGRA [Concomitant]

REACTIONS (8)
  - MYOCARDIAL INFARCTION [None]
  - CHEST PAIN [None]
  - DYSPNOEA [None]
  - VISION BLURRED [None]
  - ANXIETY [None]
  - DEPRESSION [None]
  - DIZZINESS [None]
  - ASTHENIA [None]
